FAERS Safety Report 19011936 (Version 1)
Quarter: 2021Q1

REPORT INFORMATION
  Report Type: Spontaneous
  Country: US (occurrence: US)
  Receive Date: 20210315
  Receipt Date: 20210315
  Transmission Date: 20210420
  Serious: No
  Sender: FDA-Public Use
  Company Number: US-PFIZER INC-2021204497

PATIENT
  Age: 48 Year
  Sex: Male
  Weight: 77.1 kg

DRUGS (1)
  1. SUTENT [Suspect]
     Active Substance: SUNITINIB MALATE
     Dosage: 50 MG(DAILY 4 WEEKS ON 2 WEEKS OFF)
     Route: 048

REACTIONS (1)
  - Pain in extremity [Unknown]
